FAERS Safety Report 10661685 (Version 1)
Quarter: 2014Q4

REPORT INFORMATION
  Report Type: Spontaneous
  Country: US (occurrence: None)
  Receive Date: 20141217
  Receipt Date: 20141217
  Transmission Date: 20150529
  Serious: No
  Sender: FDA-Public Use
  Company Number: None

PATIENT
  Age: 65 Year
  Sex: Male

DRUGS (9)
  1. CLOFARABINE [Suspect]
     Active Substance: CLOFARABINE
     Indication: DRUG THERAPY
     Route: 042
     Dates: start: 20141008, end: 20141012
  2. DEXAMETHASONE. [Concomitant]
     Active Substance: DEXAMETHASONE
  3. CLOFARABINE [Suspect]
     Active Substance: CLOFARABINE
     Indication: ACUTE LYMPHOCYTIC LEUKAEMIA
     Route: 042
     Dates: start: 20141008, end: 20141012
  4. CASPOFUNGIN [Concomitant]
     Active Substance: CASPOFUNGIN
  5. SULFAMETHOXAZOLE-TRIMETHOPRIM (SMZ) [Concomitant]
     Active Substance: SULFAMETHOXAZOLE\TRIMETHOPRIM
  6. METOPROLOL TARTRATE. [Concomitant]
     Active Substance: METOPROLOL TARTRATE
  7. LORAZEPAM. [Concomitant]
     Active Substance: LORAZEPAM
  8. BUSULFAN [Concomitant]
     Active Substance: BUSULFAN
  9. LEVETIRACETAM. [Concomitant]
     Active Substance: LEVETIRACETAM

REACTIONS (7)
  - Atrial fibrillation [None]
  - Chest pain [None]
  - Chest discomfort [None]
  - Pain in jaw [None]
  - Nausea [None]
  - Unresponsive to stimuli [None]
  - Vomiting [None]

NARRATIVE: CASE EVENT DATE: 20141013
